FAERS Safety Report 6885832-2 (Version None)
Quarter: 2010Q3

REPORT INFORMATION
  Report Type: 
  Country: None (occurrence: None)
  Receive Date: 20100729
  Receipt Date: 20080731
  Transmission Date: 20110219
  Serious: No
  Sender: FDA-Public Use
  Company Number: US-PFIZER INC-2008059834

PATIENT
  Sex: Female
  Weight: 59.1 kg

DRUGS (7)
  1. CELEBREX [Suspect]
     Indication: OSTEOARTHRITIS
     Dates: start: 20020101
  2. TOPAMAX [Concomitant]
  3. TRAZODONE [Concomitant]
  4. CELEXA [Concomitant]
  5. ORPHENADRINE CITRATE [Concomitant]
  6. MAXALT [Concomitant]
  7. LYRICA [Concomitant]

REACTIONS (3)
  - ARTHRALGIA [None]
  - DRUG INEFFECTIVE [None]
  - PRODUCT QUALITY ISSUE [None]
